FAERS Safety Report 13456494 (Version 2)
Quarter: 2017Q2

REPORT INFORMATION
  Report Type: Spontaneous
  Country: TW (occurrence: TW)
  Receive Date: 20170418
  Receipt Date: 20170526
  Transmission Date: 20170830
  Serious: Yes (Hospitalization)
  Sender: FDA-Public Use
  Company Number: TW-ABBVIE-17P-153-1941581-00

PATIENT
  Age: 63 Year
  Sex: Female

DRUGS (2)
  1. EXVIERA [Suspect]
     Active Substance: DASABUVIR
     Indication: HEPATITIS C
     Route: 048
     Dates: start: 20170327, end: 20170405
  2. VIEKIRAX [Suspect]
     Active Substance: OMBITASVIR\PARITAPREVIR\RITONAVIR
     Indication: HEPATITIS C
     Route: 048
     Dates: start: 20170327, end: 20170405

REACTIONS (4)
  - Vomiting [Unknown]
  - Oliguria [Unknown]
  - Oedema [Unknown]
  - Nausea [Unknown]

NARRATIVE: CASE EVENT DATE: 20170403
